FAERS Safety Report 11330123 (Version 1)
Quarter: 2015Q3

REPORT INFORMATION
  Report Type: Spontaneous
  Country: US (occurrence: US)
  Receive Date: 20150803
  Receipt Date: 20150803
  Transmission Date: 20151125
  Serious: No
  Sender: FDA-Public Use
  Company Number: US-BIOGENIDEC-2015BI102597

PATIENT
  Age: 47 Year
  Sex: Female

DRUGS (1)
  1. TYSABRI [Suspect]
     Active Substance: NATALIZUMAB
     Indication: MULTIPLE SCLEROSIS
     Route: 042
     Dates: start: 20150416

REACTIONS (3)
  - Neck mass [Not Recovered/Not Resolved]
  - Pain [Not Recovered/Not Resolved]
  - Negative thoughts [Not Recovered/Not Resolved]

NARRATIVE: CASE EVENT DATE: 201507
